FAERS Safety Report 6466974-2 (Version None)
Quarter: 2009Q4

REPORT INFORMATION
  Report Type: 
  Country: None (occurrence: None)
  Receive Date: 20091202
  Receipt Date: 20091119
  Transmission Date: 20100525
  Serious: Yes (Hospitalization)
  Sender: FDA-Public Use
  Company Number: GB-PFIZER INC-2009300016

PATIENT
  Age: 37 Year
  Sex: Male

DRUGS (6)
  1. CLINDAMYCIN HCL [Suspect]
     Indication: NEUTROPENIC SEPSIS
     Dosage: UNK
     Dates: start: 20080101, end: 20080101
  2. GENTAMICIN SULFATE [Suspect]
     Indication: NEUTROPENIC SEPSIS
     Dosage: UNK
     Dates: start: 20080101, end: 20080101
  3. METRONIDAZOLE AND METRONIDAZOLE BENZOATE AND METRONIDAZOLE HYDROCHLORI [Suspect]
     Indication: NEUTROPENIC SEPSIS
     Dosage: UNK
     Dates: start: 20080101, end: 20080101
  4. CIPROFLOXACIN [Suspect]
     Indication: NEUTROPENIC SEPSIS
     Dosage: UNK
     Dates: start: 20080101, end: 20080101
  5. PIPERACILLIN AND TAZOBACTAM [Suspect]
     Indication: NEUTROPENIC SEPSIS
     Dosage: UNK
     Dates: start: 20080101, end: 20080101
  6. PREDNISOLONE [Concomitant]
     Indication: ADVERSE DRUG REACTION
     Dosage: UNK
     Dates: start: 20080101

REACTIONS (1)
  - DRUG RASH WITH EOSINOPHILIA AND SYSTEMIC SYMPTOMS [None]
